FAERS Safety Report 5320271-7 (Version None)
Quarter: 2007Q2

REPORT INFORMATION
  Report Type: 
  Country: None (occurrence: None)
  Receive Date: 20070503
  Receipt Date: 20070503
  Transmission Date: 20071010
  Serious: Yes (Hospitalization)
  Sender: FDA-Public Use
  Company Number: None

PATIENT
  Sex: Female
  Weight: 65 kg

DRUGS (10)
  1. CARBOPLATIN [Suspect]
     Dosage: 720 MG
  2. TAXOL [Suspect]
     Dosage: 290 MG
  3. COUMADIN [Concomitant]
  4. IRON [Concomitant]
  5. ADVAIR DISKUS 100/50 [Concomitant]
  6. VITAMIN CAP [Concomitant]
  7. MS CONTIN [Concomitant]
  8. VICODIN [Concomitant]
  9. SENNA [Concomitant]
  10. COLACE [Concomitant]

REACTIONS (2)
  - CHILLS [None]
  - UPPER RESPIRATORY TRACT INFECTION [None]
